FAERS Safety Report 7393849-7 (Version None)
Quarter: 2011Q2

REPORT INFORMATION
  Report Type: 
  Country: None (occurrence: None)
  Receive Date: 20110405
  Receipt Date: 20110328
  Transmission Date: 20111010
  Serious: Yes (Other)
  Sender: FDA-Public Use
  Company Number: DE-AMGEN-DEUSP2011016539

PATIENT
  Sex: Female
  Weight: 57 kg

DRUGS (2)
  1. CHEMOTHERAPEUTICS NOS [Concomitant]
  2. NEULASTA [Suspect]
     Indication: CHEMOTHERAPY
     Dosage: 6 MG, UNK
     Route: 058
     Dates: start: 20110323

REACTIONS (3)
  - VOMITING [None]
  - MIGRAINE [None]
  - NAUSEA [None]
